FAERS Safety Report 25699545 (Version 1)
Quarter: 2025Q3

REPORT INFORMATION
  Report Type: Spontaneous
  Country: US (occurrence: US)
  Receive Date: 20250819
  Receipt Date: 20250819
  Transmission Date: 20251020
  Serious: No
  Sender: MC2 Therapeutics
  Company Number: US-MC2 Therapeutics, Ltd-2182781

PATIENT
  Age: 17 Year
  Sex: Female
  Weight: 63.5 kg

DRUGS (2)
  1. WYNZORA [Suspect]
     Active Substance: BETAMETHASONE DIPROPIONATE\CALCIPOTRIENE
     Indication: Psoriasis
  2. ZORYVE [Concomitant]
     Active Substance: ROFLUMILAST

REACTIONS (3)
  - Application site discolouration [Recovered/Resolved]
  - Product use issue [Unknown]
  - Product use issue [Unknown]
